FAERS Safety Report 7954619-1 (Version None)
Quarter: 2011Q4

REPORT INFORMATION
  Report Type: 
  Country: None (occurrence: None)
  Receive Date: 20111202
  Receipt Date: 20111129
  Transmission Date: 20120403
  Serious: Yes (Death)
  Sender: FDA-Public Use
  Company Number: PHEH2011US010418

PATIENT
  Sex: Female

DRUGS (2)
  1. GILENYA [Suspect]
     Dosage: 0.5 MG, QD
     Route: 048
     Dates: start: 20111122
  2. NAPROXEN SODIUM [Suspect]
     Indication: HEADACHE

REACTIONS (3)
  - HEADACHE [None]
  - PULMONARY OEDEMA [None]
  - DEATH [None]
